FAERS Safety Report 22164795 (Version 4)
Quarter: 2024Q4

REPORT INFORMATION
  Report Type: Report from Study
  Country: US (occurrence: US)
  Receive Date: 20230403
  Receipt Date: 20241129
  Transmission Date: 20250115
  Serious: Yes (Hospitalization, Other)
  Sender: ABBVIE
  Company Number: US-ABBVIE-4710918

PATIENT
  Age: 80 Year
  Sex: Female
  Weight: 52 kg

DRUGS (20)
  1. SKYRIZI [Suspect]
     Active Substance: RISANKIZUMAB-RZAA
     Indication: Psoriasis
     Dosage: LAST ADMIN DATE- 2022
     Route: 058
     Dates: start: 20220405
  2. SKYRIZI [Suspect]
     Active Substance: RISANKIZUMAB-RZAA
     Indication: Psoriatic arthropathy
     Route: 058
     Dates: start: 20220712
  3. SKYRIZI [Suspect]
     Active Substance: RISANKIZUMAB-RZAA
     Dosage: 150 MG/ML SOLUTION AUTO-INJECTOR, INJECT 150 MG UNDER THE SKIN EVERY THREE MONTHS
     Route: 058
     Dates: start: 20230103, end: 202410
  4. FEXOFENADINE [Concomitant]
     Active Substance: FEXOFENADINE HYDROCHLORIDE
     Indication: Product used for unknown indication
     Dosage: TAKE 180 MG BY MOUTH DAILY
     Route: 048
     Dates: start: 20240308
  5. FLUTICASONE [Concomitant]
     Active Substance: FLUTICASONE
     Indication: Product used for unknown indication
     Dosage: ADMINISTER 1 SPRAY INTO EACH NOSTRIL TWO TIMES A DAY?LAST TIME THIS WAS GIVEN: 07 JUL 2024
     Dates: start: 20240202, end: 20240707
  6. FOLIC ACID [Concomitant]
     Active Substance: FOLIC ACID
     Indication: Product used for unknown indication
     Dosage: TAKE 1 MG BY MOUTH DAILY
     Route: 048
     Dates: start: 20240202, end: 20240707
  7. LEVOTHYROXINE [Concomitant]
     Active Substance: LEVOTHYROXINE
     Indication: Therapeutic response increased
     Dosage: 25 MCG TABLET?TAKE 1 TABLET (25 MCG) BY MOUTH DAILY ON EMPTY STOMACH,  LAST TIME THIS WAS GIVEN: ...
     Route: 048
  8. LIDOCAINE [Concomitant]
     Active Substance: LIDOCAINE
     Indication: Product used for unknown indication
     Dosage: APPLY 1 PATCH TOPICALLY DAILY REMOVE + DISCARD PATCH?WITHIN 12 HOURS , LAST TIME THIS WAS GIVEN: ...
  9. ROPINIROLE [Concomitant]
     Active Substance: ROPINIROLE
     Indication: Product used for unknown indication
     Dosage: TAKE 0.5 MG BY MOUTH NIGHTLY
     Route: 048
     Dates: start: 20240202, end: 20240706
  10. SIMVASTATIN [Concomitant]
     Active Substance: SIMVASTATIN
     Indication: Product used for unknown indication
     Dosage: TAKE 10 MG BY MOUTH NIGHTLY
     Route: 048
     Dates: start: 20240202, end: 20240706
  11. TIOTROPIUM [Concomitant]
     Active Substance: TIOTROPIUM
     Indication: Product used for unknown indication
     Dosage: PLACE 1 CAPSULE INTO INHALER AND INHALE EVERY MORNING
  12. VITAMIN D [Concomitant]
     Active Substance: VITAMIN D NOS
     Indication: Product used for unknown indication
     Dosage: TAKE 1 CAPSULE BY MOUTH DAILY.
     Route: 048
     Dates: start: 20240208
  13. WIXELA INHUB [Concomitant]
     Active Substance: FLUTICASONE PROPIONATE\SALMETEROL XINAFOATE
     Indication: Product used for unknown indication
     Dosage: 250-50 MCG/ACT AEROSOL POWDER?INHALE 1 PUFF TWO TIMES A DAY
  14. ALBUTEROL SULFATE [Concomitant]
     Active Substance: ALBUTEROL SULFATE
     Indication: Wheezing
     Dosage: 108 (90 BASE) MCG/ACT INHALER?INHALE 2 PUFFS EVERY SIX HOURS AS NEEDED
  15. BENZONATATE [Concomitant]
     Active Substance: BENZONATATE
     Indication: Cough
     Dosage: TIME INTERVAL: 0.33333333 DAYS: TAKE 100 MG BY MOUTH THREE TIMES A DAY AS NEEDED FOR?COUGH
     Route: 048
  16. CITALOPRAM [Concomitant]
     Active Substance: CITALOPRAM
     Indication: Product used for unknown indication
     Dosage: 40 MG TABLET?TAKE 20 MG BY MOUTH DAILY
     Route: 048
     Dates: start: 20240202, end: 20240706
  17. CYANOCOBALAMIN [Concomitant]
     Active Substance: CYANOCOBALAMIN
     Indication: Product used for unknown indication
     Dosage: 1000 MCG TABLET?TAKE 2,000 MCG BY MOUTH EVERY OTHER DAY
     Route: 048
     Dates: start: 20230123, end: 20240707
  18. DENOSUMAB [Concomitant]
     Active Substance: DENOSUMAB
     Indication: Product used for unknown indication
     Dosage: 60 MG/ML SOLUTION PREFILLED SYRINGE SYRINGE, INJECT 1 ML UNDER THE SKIN EVERY SIX MONTHS LAST INJ...
  19. MAGNESIUM [Concomitant]
     Active Substance: MAGNESIUM
     Indication: Product used for unknown indication
     Dosage: TAKE 400 MG BY MOUTH NIGHTLY
     Route: 048
     Dates: start: 20240202
  20. OXYCODONE AND ACETAMINOPHEN [Concomitant]
     Active Substance: ACETAMINOPHEN\OXYCODONE HYDROCHLORIDE
     Indication: Pain
     Dosage: 5-325 MG PER TABLET?TAKE 1 TABLET BY MOUTH DAILY AS NEEDED (PAIN), LAST TIME THIS WAS GIVEN: 1 TA...
     Route: 048
     Dates: start: 20240704, end: 20240707

REACTIONS (20)
  - Fall [Recovering/Resolving]
  - Restless legs syndrome [Unknown]
  - Pneumothorax [Unknown]
  - Hiatus hernia [Unknown]
  - Fall [Unknown]
  - Tremor [Unknown]
  - Dysstasia [Unknown]
  - Aneurysm [Unknown]
  - Fall [Unknown]
  - Fall [Unknown]
  - Contusion [Unknown]
  - Oesophagogastric fundoplasty [Unknown]
  - Acute kidney injury [Unknown]
  - Hypercalcaemia [Unknown]
  - Hypotension [Unknown]
  - Fall [Unknown]
  - Rehabilitation therapy [Unknown]
  - Fall [Unknown]
  - Malnutrition [Unknown]
  - Back pain [Unknown]

NARRATIVE: CASE EVENT DATE: 20230101
